FAERS Safety Report 5715083-6 (Version None)
Quarter: 2008Q2

REPORT INFORMATION
  Report Type: 
  Country: None (occurrence: None)
  Receive Date: 20080423
  Receipt Date: 20080417
  Transmission Date: 20081010
  Serious: Yes (Death)
  Sender: FDA-Public Use
  Company Number: US-BOEHRINGER INGELHEIM GMBH, GERMANY-2008-BP-06188RO

PATIENT

DRUGS (1)
  1. METHADONE HCL [Suspect]
     Indication: PAIN

REACTIONS (1)
  - SUDDEN CARDIAC DEATH [None]
